FAERS Safety Report 9685434 (Version 1)
Quarter: 2013Q4

REPORT INFORMATION
  Report Type: Spontaneous
  Country: US (occurrence: None)
  Receive Date: 20131112
  Receipt Date: 20131112
  Transmission Date: 20140711
  Serious: Yes (Other)
  Sender: FDA-Public Use
  Company Number: None

PATIENT
  Age: 45 Year
  Sex: Female
  Weight: 70.76 kg

DRUGS (1)
  1. METHYLPENIDATE (METHYLPHENIDATE) [Suspect]
     Indication: ATTENTION DEFICIT/HYPERACTIVITY DISORDER
     Route: 048
     Dates: end: 201311

REACTIONS (9)
  - Feeling jittery [None]
  - Disturbance in attention [None]
  - Hot flush [None]
  - Thirst [None]
  - Palpitations [None]
  - Irritability [None]
  - Educational problem [None]
  - Product quality issue [None]
  - Product physical issue [None]
